FAERS Safety Report 9107790 (Version 2)
Quarter: 2013Q1

REPORT INFORMATION
  Report Type: Spontaneous
  Country: BE (occurrence: BE)
  Receive Date: 20130221
  Receipt Date: 20130329
  Transmission Date: 20140127
  Serious: Yes (Other)
  Sender: FDA-Public Use
  Company Number: BE-BIOGENIDEC-2013BI014901

PATIENT
  Age: 20 Year
  Sex: Female

DRUGS (3)
  1. AVONEX [Suspect]
     Indication: PRODUCT USED FOR UNKNOWN INDICATION
     Route: 030
     Dates: start: 201108
  2. INDERAL [Concomitant]
  3. GESTODEL 20 [Concomitant]

REACTIONS (1)
  - Pulmonary tuberculosis [Unknown]
